FAERS Safety Report 6127944-7 (Version None)
Quarter: 2009Q1

REPORT INFORMATION
  Report Type: 
  Country: None (occurrence: None)
  Receive Date: 20090320
  Receipt Date: 20090320
  Transmission Date: 20090719
  Serious: No
  Sender: FDA-Public Use
  Company Number: None

PATIENT
  Age: 16 Year
  Sex: Female
  Weight: 54.4316 kg

DRUGS (1)
  1. HALDOL [Suspect]
     Dates: start: 20090301, end: 20090319

REACTIONS (1)
  - HALLUCINATION, VISUAL [None]
